FAERS Safety Report 8110705-7 (Version None)
Quarter: 2012Q1

REPORT INFORMATION
  Report Type: 
  Country: None (occurrence: None)
  Receive Date: 20120203
  Receipt Date: 20120126
  Transmission Date: 20120608
  Serious: Yes (Hospitalization)
  Sender: FDA-Public Use
  Company Number: US-JNJFOC-20120112068

PATIENT
  Sex: Female

DRUGS (2)
  1. SIMPONI [Suspect]
     Indication: RHEUMATOID ARTHRITIS
     Dosage: INITIAL DOSE
     Route: 058
     Dates: start: 20111222
  2. METHOTREXATE [Concomitant]
     Indication: RHEUMATOID ARTHRITIS

REACTIONS (6)
  - PLATELET COUNT DECREASED [None]
  - BLOOD POTASSIUM DECREASED [None]
  - HEPATIC ENZYME INCREASED [None]
  - HEPATOMEGALY [None]
  - PYREXIA [None]
  - ASTHENIA [None]
